FAERS Safety Report 8419250-2 (Version None)
Quarter: 2012Q2

REPORT INFORMATION
  Report Type: 
  Country: None (occurrence: None)
  Receive Date: 20120530
  Receipt Date: 20120516
  Transmission Date: 20120825
  Serious: Yes (Hospitalization)
  Sender: FDA-Public Use
  Company Number: USW201205-000093

PATIENT
  Age: 76 Year
  Sex: Female

DRUGS (1)
  1. APOKYN [Suspect]
     Indication: PRODUCT USED FOR UNKNOWN INDICATION
     Dosage: PUMP
     Dates: start: 20120427

REACTIONS (1)
  - UPPER LIMB FRACTURE [None]
